FAERS Safety Report 24744071 (Version 1)
Quarter: 2024Q4

REPORT INFORMATION
  Report Type: Spontaneous
  Country: US (occurrence: US)
  Receive Date: 20241217
  Receipt Date: 20241217
  Transmission Date: 20250115
  Serious: No
  Sender: BRISTOL-MYERS SQUIBB COMPANY
  Company Number: US-BRISTOL-MYERS SQUIBB COMPANY-2024-195393

PATIENT
  Age: 66 Year
  Sex: Female

DRUGS (1)
  1. ORENCIA [Suspect]
     Active Substance: ABATACEPT
     Indication: Rheumatoid arthritis
     Route: 058
     Dates: start: 20240120

REACTIONS (7)
  - Pain [Unknown]
  - Arthralgia [Unknown]
  - Brain fog [Unknown]
  - Fatigue [Unknown]
  - Nasopharyngitis [Unknown]
  - Tooth infection [Unknown]
  - Inflammatory marker decreased [Unknown]

NARRATIVE: CASE EVENT DATE: 20241201
